FAERS Safety Report 23916457 (Version 2)
Quarter: 2024Q2

REPORT INFORMATION
  Report Type: Spontaneous
  Country: BR (occurrence: None)
  Receive Date: 20240529
  Receipt Date: 20240614
  Transmission Date: 20240716
  Serious: Yes (Other)
  Sender: FDA-Public Use
  Company Number: 2024A122291

PATIENT
  Sex: Male
  Weight: 54.4 kg

DRUGS (1)
  1. XIGDUO XR [Suspect]
     Active Substance: DAPAGLIFLOZIN PROPANEDIOL\METFORMIN HYDROCHLORIDE
     Dosage: 5/1000MG
     Route: 048

REACTIONS (5)
  - Renal failure [Unknown]
  - Dyspnoea [Unknown]
  - Nausea [Unknown]
  - Decreased appetite [Unknown]
  - Dehydration [Unknown]
